FAERS Safety Report 10928318 (Version 1)
Quarter: 2015Q1

REPORT INFORMATION
  Report Type: Spontaneous
  Country: US (occurrence: None)
  Receive Date: 20150318
  Receipt Date: 20150318
  Transmission Date: 20150721
  Serious: Yes (Death)
  Sender: FDA-Public Use
  Company Number: None

PATIENT
  Age: 47 Year
  Sex: Male

DRUGS (6)
  1. IMBRUVICA [Suspect]
     Active Substance: IBRUTINIB
     Indication: MANTLE CELL LYMPHOMA RECURRENT
     Dosage: 4 CAPSULES
     Route: 048
     Dates: start: 201311, end: 20140226
  2. METHADONE [Concomitant]
     Active Substance: METHADONE HYDROCHLORIDE
  3. COQ10 [Concomitant]
     Active Substance: UBIDECARENONE
  4. ATIVAN [Concomitant]
     Active Substance: LORAZEPAM
  5. IRON [Concomitant]
     Active Substance: IRON
  6. LYRICA [Concomitant]
     Active Substance: PREGABALIN

REACTIONS (2)
  - Arrhythmia [None]
  - Congestive cardiomyopathy [None]
